FAERS Safety Report 6200004-2 (Version None)
Quarter: 2009Q2

REPORT INFORMATION
  Report Type: 
  Country: None (occurrence: None)
  Receive Date: 20090522
  Receipt Date: 20080919
  Transmission Date: 20091009
  Serious: Yes (Hospitalization, Other)
  Sender: FDA-Public Use
  Company Number: US-ALEXION-A200700043

PATIENT
  Sex: Female
  Weight: 93.878 kg

DRUGS (21)
  1. SOLIRIS [Suspect]
     Indication: PAROXYSMAL NOCTURNAL HAEMOGLOBINURIA
     Dosage: 600 MG, SINGLE
     Route: 042
     Dates: start: 20070524, end: 20070524
  2. SOLIRIS [Suspect]
     Dosage: 600 MG, SINGLE
     Route: 042
     Dates: start: 20070531, end: 20070531
  3. SOLIRIS [Suspect]
     Dosage: 600 MG, SINGLE
     Route: 042
     Dates: start: 20070607, end: 20070607
  4. SOLIRIS [Suspect]
     Dosage: 600 MG, SINGLE
     Route: 042
     Dates: start: 20070613, end: 20070613
  5. SOLIRIS [Suspect]
     Dosage: 900 MG, SINGLE
     Route: 042
     Dates: start: 20070620, end: 20070620
  6. SOLIRIS [Suspect]
     Dosage: 900 MG, SINGLE
     Route: 042
     Dates: start: 20070704, end: 20070704
  7. SOLIRIS [Suspect]
     Dosage: 900 MG, SINGLE
     Route: 042
     Dates: start: 20070718, end: 20070718
  8. SOLIRIS [Suspect]
     Dosage: 900 MG, SINGLE
     Route: 042
     Dates: start: 20070803, end: 20070803
  9. SOLIRIS [Suspect]
     Dosage: 900 MG, SINGLE
     Route: 042
     Dates: start: 20070815, end: 20070815
  10. SOLIRIS [Suspect]
     Dosage: 900 MG, SINGLE
     Route: 042
     Dates: start: 20070829, end: 20070829
  11. SOLIRIS [Suspect]
     Dosage: 900 MG, SINGLE
     Route: 042
     Dates: start: 20070912, end: 20070912
  12. SOLIRIS [Suspect]
     Dosage: 900 MG, SINGLE
     Route: 042
     Dates: start: 20080827, end: 20080827
  13. PROCRIT                            /00909301/ [Concomitant]
     Dosage: 60000 IU, WEEKLY
     Route: 058
  14. FOLIC ACID [Concomitant]
     Dosage: 2 MG, QD
     Route: 048
  15. BUMEX [Concomitant]
     Dosage: 2 MG, BID
     Route: 048
  16. POTASSIUM CHLORIDE [Concomitant]
     Dosage: 20 MEQ, BID
     Route: 048
  17. CELEXA [Concomitant]
     Dosage: 10 MG, QD
     Route: 048
  18. WARFARIN SODIUM [Concomitant]
     Dosage: 2.5 MG, QD, MON-FRI
     Route: 048
  19. WARFARIN SODIUM [Concomitant]
     Dosage: 5 MG, QD, SAT + SUN
     Route: 048
  20. METHADONE [Concomitant]
     Dosage: 10 MG, TID
     Route: 048
  21. FOSAMAX [Concomitant]
     Dosage: 70 MG, QW
     Route: 048

REACTIONS (13)
  - ABDOMINAL PAIN UPPER [None]
  - CELLULITIS [None]
  - DIZZINESS [None]
  - DYSPNOEA [None]
  - HAEMOGLOBIN DECREASED [None]
  - HEADACHE [None]
  - HEPATIC ENZYME INCREASED [None]
  - INFLUENZA [None]
  - INFLUENZA LIKE ILLNESS [None]
  - MENINGITIS MENINGOCOCCAL [None]
  - PYREXIA [None]
  - SINUSITIS [None]
  - VOMITING [None]
